FAERS Safety Report 10084714 (Version 2)
Quarter: 2014Q2

REPORT INFORMATION
  Report Type: Spontaneous
  Country: JP (occurrence: JP)
  Receive Date: 20140417
  Receipt Date: 20140602
  Transmission Date: 20141212
  Serious: Yes (Hospitalization)
  Sender: FDA-Public Use
  Company Number: JP-GLAXOSMITHKLINE-B0959948A

PATIENT
  Age: 84 Year
  Sex: Male

DRUGS (5)
  1. LAMICTAL [Suspect]
     Indication: EPILEPSY
     Dosage: 50MG PER DAY
     Route: 048
     Dates: start: 20131107, end: 20131120
  2. LAMICTAL [Suspect]
     Indication: EPILEPSY
     Dosage: 50MG TWICE PER DAY
     Route: 048
     Dates: start: 20131121, end: 20131225
  3. HYDANTOL [Concomitant]
     Indication: PROPHYLAXIS
     Route: 048
     Dates: start: 20131017
  4. PHENOBAL [Concomitant]
     Indication: PROPHYLAXIS
     Dosage: 1IUAX TWICE PER DAY
     Route: 048
     Dates: start: 20131017
  5. HYDANTOL [Concomitant]
     Indication: PROPHYLAXIS
     Dosage: 3IUAX TWICE PER DAY
     Route: 048
     Dates: start: 1973

REACTIONS (15)
  - Stevens-Johnson syndrome [Recovering/Resolving]
  - Rash [Unknown]
  - Conjunctival hyperaemia [Unknown]
  - Pyrexia [Unknown]
  - Rash [Unknown]
  - Rash generalised [Unknown]
  - Ocular hyperaemia [Unknown]
  - Erythema of eyelid [Unknown]
  - Oral mucosa erosion [Unknown]
  - Lip erosion [Unknown]
  - Erythema [Unknown]
  - Fall [Unknown]
  - Skin exfoliation [Unknown]
  - Perivascular dermatitis [Unknown]
  - Erythema [Unknown]
